FAERS Safety Report 7586667-8 (Version None)
Quarter: 2011Q3

REPORT INFORMATION
  Report Type: 
  Country: None (occurrence: None)
  Receive Date: 20110701
  Receipt Date: 20110622
  Transmission Date: 20111222
  Serious: Yes (Other)
  Sender: FDA-Public Use
  Company Number: US-ELI_LILLY_AND_COMPANY-US200910004696

PATIENT
  Sex: Female
  Weight: 88.435 kg

DRUGS (7)
  1. EXENATIDE [Suspect]
     Dosage: 10 UG, 2/D
     Route: 058
  2. SYMLIN [Concomitant]
     Indication: TYPE 2 DIABETES MELLITUS
     Dosage: 10 UG, 2/D
     Route: 058
     Dates: end: 20060901
  3. ZOCOR [Concomitant]
     Indication: BLOOD CHOLESTEROL
     Dosage: 20 UG, QD
  4. SYNTHROID [Concomitant]
     Indication: THYROID DISORDER
     Dosage: 50 UG, QD
  5. EXENATIDE [Suspect]
     Indication: TYPE 2 DIABETES MELLITUS
     Dosage: 5 UG, 2/D
     Route: 058
     Dates: start: 20050101, end: 20060101
  6. GLUCOPHAGE [Concomitant]
     Indication: THYROID DISORDER
     Dosage: 500 MG, BID
  7. EXENATIDE [Suspect]
     Dosage: 10 UG, 2/D
     Route: 058
     Dates: start: 20060928, end: 20090901

REACTIONS (17)
  - EYE OPERATION [None]
  - BLOOD GLUCOSE DECREASED [None]
  - INTENTIONAL DRUG MISUSE [None]
  - HYPOGLYCAEMIC UNCONSCIOUSNESS [None]
  - WEIGHT DECREASED [None]
  - EYE DISORDER [None]
  - FOOD CRAVING [None]
  - VISUAL ACUITY REDUCED [None]
  - HYPOACUSIS [None]
  - INJECTION SITE HAEMATOMA [None]
  - INCREASED APPETITE [None]
  - DRUG DOSE OMISSION [None]
  - HYPERTENSION [None]
  - DECREASED APPETITE [None]
  - FALL [None]
  - THYROID DISORDER [None]
  - SENSATION OF BLOOD FLOW [None]
